FAERS Safety Report 15005768 (Version 1)
Quarter: 2018Q2

REPORT INFORMATION
  Report Type: Spontaneous
  Country: US (occurrence: US)
  Receive Date: 20180525
  Receipt Date: 20180525
  Transmission Date: 20180711
  Serious: No
  Sender: FDA-Public Use
  Company Number: None

PATIENT
  Sex: Female

DRUGS (5)
  1. OCALIVA [Suspect]
     Active Substance: OBETICHOLIC ACID
     Indication: BILIARY CIRRHOSIS
     Route: 048
     Dates: start: 20170731
  2. DOK [Concomitant]
     Active Substance: DOCUSATE SODIUM
  3. TRIAMT/HCTZ [Concomitant]
     Active Substance: HYDROCHLOROTHIAZIDE\TRIAMTERENE
  4. URSODIOL. [Concomitant]
     Active Substance: URSODIOL
  5. ASPRIN [Concomitant]
     Active Substance: ASPIRIN

REACTIONS (1)
  - Nausea [None]
